FAERS Safety Report 4535267-2 (Version None)
Quarter: 2004Q4

REPORT INFORMATION
  Report Type: 
  Country: None (occurrence: None)
  Receive Date: 20041214
  Receipt Date: 20040927
  Transmission Date: 20050328
  Serious: No
  Sender: FDA-Public Use
  Company Number: 2004237581US

PATIENT
  Age: 74 Year
  Sex: Male
  Weight: 77.1 kg

DRUGS (4)
  1. BEXTRA [Suspect]
     Indication: RHEUMATOID ARTHRITIS
     Dosage: 20 MG, QD, ORAL
     Route: 048
     Dates: start: 20040701
  2. ZOLOFT [Concomitant]
  3. METHOTREXATE [Concomitant]
  4. TRAZODONE [Concomitant]

REACTIONS (2)
  - HAEMOGLOBIN URINE PRESENT [None]
  - RED BLOOD CELLS URINE [None]
